FAERS Safety Report 8300442-8 (Version None)
Quarter: 2012Q2

REPORT INFORMATION
  Report Type: 
  Country: None (occurrence: None)
  Receive Date: 20120420
  Receipt Date: 20120409
  Transmission Date: 20120825
  Serious: Yes (Hospitalization)
  Sender: FDA-Public Use
  Company Number: ES-UCBSA-055219

PATIENT
  Age: 46 Year
  Sex: Female

DRUGS (5)
  1. ASPIRIN [Concomitant]
  2. VALPROIC ACID [Suspect]
     Indication: COMPLEX PARTIAL SEIZURES
  3. ATORVASTATIN [Concomitant]
  4. LEVETIRACETAM [Suspect]
     Indication: COMPLEX PARTIAL SEIZURES
  5. TAMOXIFEN CITRATE [Concomitant]
     Indication: BREAST CANCER IN SITU

REACTIONS (1)
  - PSYCHOMOTOR HYPERACTIVITY [None]
